FAERS Safety Report 23514681 (Version 1)
Quarter: 2024Q1

REPORT INFORMATION
  Report Type: Spontaneous
  Country: NL (occurrence: NL)
  Receive Date: 20240212
  Receipt Date: 20240212
  Transmission Date: 20240410
  Serious: Yes (Life-Threatening, Disabling, Other)
  Sender: FDA-Public Use
  Company Number: None

PATIENT
  Age: 35 Year
  Sex: Female
  Weight: 135 kg

DRUGS (10)
  1. GLICLAZIDE [Suspect]
     Active Substance: GLICLAZIDE
     Indication: Diabetes mellitus
     Dosage: UNK
     Route: 065
     Dates: start: 20200101
  2. HYDROCHLOROTHIAZIDE [Suspect]
     Active Substance: HYDROCHLOROTHIAZIDE
     Indication: Cardiac disorder
     Dosage: 50 MILLIGRAM, QD, 1 X 1 DURING THE DAY
     Route: 065
     Dates: start: 20200101
  3. METOPROLOL [Suspect]
     Active Substance: METOPROLOL
     Indication: Cardiac disorder
     Dosage: 400 MILLIGRAM
     Route: 065
     Dates: start: 20200101
  4. METFORMIN [Suspect]
     Active Substance: METFORMIN HYDROCHLORIDE
     Indication: Diabetes mellitus
     Dosage: 1000 MILLIGRAM, Q8H, 3 X DAILY 1 PIECE
     Route: 065
     Dates: start: 20200101
  5. LEVOTHYROXINE [Suspect]
     Active Substance: LEVOTHYROXINE\LEVOTHYROXINE SODIUM
     Indication: Graves^ disease
     Dosage: 100 MICROGRAM, QD, 1 X 1 DAILY
     Route: 065
     Dates: start: 20200101
  6. CARBASPIRIN CALCIUM [Suspect]
     Active Substance: CARBASPIRIN CALCIUM
     Indication: Cardiac disorder
     Dosage: 100 MILLIGRAM, QD, 1 X ONCE A DAY
     Route: 065
     Dates: start: 20201007
  7. ARIPIPRAZOLE [Suspect]
     Active Substance: ARIPIPRAZOLE
     Indication: Product used for unknown indication
     Dosage: 1 DOSAGE FORM, 1 X EVERY 25 DAYS 1
     Route: 065
     Dates: start: 20230202
  8. OXAZEPAM [Concomitant]
     Active Substance: OXAZEPAM
     Dosage: 50 MILLIGRAM, TABLET
     Route: 065
  9. LORAZEPAM [Concomitant]
     Active Substance: LORAZEPAM
     Dosage: 2.5 MILLIGRAM, TABLET
     Route: 065
  10. BIPERIDEN [Concomitant]
     Active Substance: BIPERIDEN
     Dosage: 2 MILLIGRAM, TABLET, 2 MG (MILLIGRAM)
     Route: 065

REACTIONS (5)
  - Swelling [Unknown]
  - Dysphagia [Unknown]
  - Dyspnoea [Unknown]
  - Chest pain [Unknown]
  - Cardiac disorder [Unknown]
